FAERS Safety Report 24011418 (Version 1)
Quarter: 2024Q2

REPORT INFORMATION
  Report Type: Report from Study
  Country: DE (occurrence: DE)
  Receive Date: 20240625
  Receipt Date: 20240625
  Transmission Date: 20240716
  Serious: Yes (Other)
  Sender: FDA-Public Use
  Company Number: DE-JNJFOC-20230413256

PATIENT
  Age: 17 Year
  Sex: Male

DRUGS (4)
  1. REMICADE [Suspect]
     Active Substance: INFLIXIMAB
     Indication: Crohn^s disease
     Route: 041
     Dates: start: 20000518, end: 20100318
  2. REMICADE [Suspect]
     Active Substance: INFLIXIMAB
     Route: 041
     Dates: start: 20100417, end: 20100417
  3. REMICADE [Suspect]
     Active Substance: INFLIXIMAB
     Route: 041
     Dates: start: 20100517, end: 20110119
  4. REMICADE [Suspect]
     Active Substance: INFLIXIMAB
     Route: 041
     Dates: start: 20110203, end: 20110725

REACTIONS (8)
  - Pyoderma gangrenosum [Recovered/Resolved]
  - Anal fissure [Recovered/Resolved]
  - Dermatitis [Recovered/Resolved]
  - Gastrostomy [Not Recovered/Not Resolved]
  - Ileostomy [Not Recovered/Not Resolved]
  - Iron deficiency [Recovered/Resolved]
  - Vitamin D deficiency [Recovered/Resolved]
  - Zinc deficiency [Recovered/Resolved]

NARRATIVE: CASE EVENT DATE: 20130821
